FAERS Safety Report 12331279 (Version 1)
Quarter: 2016Q2

REPORT INFORMATION
  Report Type: Spontaneous
  Country: US (occurrence: None)
  Receive Date: 20160503
  Receipt Date: 20160503
  Transmission Date: 20160815
  Serious: Yes (Life-Threatening)
  Sender: FDA-Public Use
  Company Number: None

PATIENT
  Age: 55 Year
  Sex: Male
  Weight: 131.3 kg

DRUGS (1)
  1. GABAPENTIN. [Suspect]
     Active Substance: GABAPENTIN
     Indication: PAIN
     Route: 048
     Dates: start: 20121101, end: 20160328

REACTIONS (3)
  - Eosinophil count increased [None]
  - Drug reaction with eosinophilia and systemic symptoms [None]
  - Condition aggravated [None]

NARRATIVE: CASE EVENT DATE: 20160325
